FAERS Safety Report 8460623-X (Version None)
Quarter: 2012Q2

REPORT INFORMATION
  Report Type: 
  Country: None (occurrence: None)
  Receive Date: 20120622
  Receipt Date: 20120613
  Transmission Date: 20120825
  Serious: Yes (Other)
  Sender: FDA-Public Use
  Company Number: US-ASTRAZENECA-2012SE39686

PATIENT
  Age: 69 Year
  Sex: Male
  Weight: 78.9 kg

DRUGS (1)
  1. SYMBICORT [Suspect]
     Indication: CHRONIC OBSTRUCTIVE PULMONARY DISEASE
     Dosage: 80/4.5 MCG, TWO PUFFS BID
     Route: 055
     Dates: start: 20120608

REACTIONS (2)
  - PULSE ABSENT [None]
  - HYPOTENSION [None]
